FAERS Safety Report 9233977 (Version 1)
Quarter: 2013Q2

REPORT INFORMATION
  Report Type: Spontaneous
  Country: US (occurrence: US)
  Receive Date: 20130416
  Receipt Date: 20130416
  Transmission Date: 20140414
  Serious: No
  Sender: FDA-Public Use
  Company Number: US-BANPHARM-20130527

PATIENT
  Sex: Female

DRUGS (2)
  1. ALEVE UNKNOWN PRODUCT [Suspect]
     Indication: DYSMENORRHOEA
     Dosage: 2 DF,
     Dates: start: 20121231, end: 20121231
  2. MIDOL UNKNOWN PRODUCT [Suspect]
     Indication: DYSMENORRHOEA
     Dates: start: 20121229, end: 20121229

REACTIONS (1)
  - Drug ineffective [Not Recovered/Not Resolved]
